FAERS Safety Report 10278216 (Version 1)
Quarter: 2014Q3

REPORT INFORMATION
  Report Type: Spontaneous
  Country: US (occurrence: US)
  Receive Date: 20140704
  Receipt Date: 20140704
  Transmission Date: 20150326
  Serious: No
  Sender: FDA-Public Use
  Company Number: US-PFIZER INC-2014180166

PATIENT
  Sex: Female

DRUGS (1)
  1. ADVIL [Suspect]
     Active Substance: IBUPROFEN
     Dosage: UNK

REACTIONS (6)
  - Feeling hot [Unknown]
  - Discomfort [Unknown]
  - Rash generalised [Unknown]
  - Swelling [Unknown]
  - Erythema [Unknown]
  - Pain [Unknown]

NARRATIVE: CASE EVENT DATE: 2014
